FAERS Safety Report 7793577-X (Version None)
Quarter: 2011Q4

REPORT INFORMATION
  Report Type: 
  Country: None (occurrence: None)
  Receive Date: 20111003
  Receipt Date: 20110328
  Transmission Date: 20120403
  Serious: Yes (Other)
  Sender: FDA-Public Use
  Company Number: PHHY2010SG91455

PATIENT
  Sex: Female
  Weight: 2.925 kg

DRUGS (1)
  1. GLEEVEC [Suspect]
     Dosage: MATERNAL DOSE:400 MG DAILY
     Route: 064

REACTIONS (2)
  - DEAFNESS [None]
  - MATERNAL EXPOSURE DURING PREGNANCY [None]
